FAERS Safety Report 20028022 (Version 15)
Quarter: 2023Q2

REPORT INFORMATION
  Report Type: Report from Study
  Country: JP (occurrence: JP)
  Receive Date: 20211103
  Receipt Date: 20230526
  Transmission Date: 20230722
  Serious: Yes (Hospitalization)
  Sender: FDA-Public Use
  Company Number: JP-ABBVIE-21K-087-4123994-00

PATIENT
  Age: 73 Year
  Sex: Female
  Weight: 40 kg

DRUGS (15)
  1. RINVOQ [Suspect]
     Active Substance: UPADACITINIB
     Indication: Rheumatoid arthritis
     Route: 048
     Dates: start: 20201225, end: 20210817
  2. RINVOQ [Suspect]
     Active Substance: UPADACITINIB
     Indication: Rheumatoid arthritis
     Dosage: 15 MILLIGRAM
     Route: 048
     Dates: start: 20211012
  3. METHOTREXATE [Suspect]
     Active Substance: METHOTREXATE
     Indication: Rheumatoid arthritis
     Dosage: 8 MG/WEEK
     Route: 048
     Dates: start: 19970704
  4. CELECOXIB [Suspect]
     Active Substance: CELECOXIB
     Indication: Rheumatoid arthritis
     Route: 048
  5. UNSPECIFIED INGREDIENT [Concomitant]
     Active Substance: UNSPECIFIED INGREDIENT
     Indication: Product used for unknown indication
     Route: 048
  6. BETAMETHASONE [Concomitant]
     Active Substance: BETAMETHASONE
     Indication: Rheumatoid arthritis
     Dosage: 0.25 MILLIGRAM
     Route: 048
     Dates: start: 1982
  7. BETAMETHASONE [Concomitant]
     Active Substance: BETAMETHASONE
     Indication: Rheumatoid arthritis
     Dosage: 0.25 MILLIGRAM
     Route: 048
     Dates: start: 1982
  8. BETAMETHASONE [Concomitant]
     Active Substance: BETAMETHASONE
     Indication: Rheumatoid arthritis
     Route: 048
     Dates: start: 1982
  9. SULFAMETHOXAZOLE\TRIMETHOPRIM [Suspect]
     Active Substance: SULFAMETHOXAZOLE\TRIMETHOPRIM
     Indication: Product used for unknown indication
     Route: 065
  10. Rinderon [Concomitant]
     Indication: Rheumatoid arthritis
     Route: 065
  11. FOLIC ACID [Concomitant]
     Active Substance: FOLIC ACID
     Indication: Rheumatoid arthritis
     Route: 048
     Dates: start: 1997
  12. VONOPRAZAN FUMARATE [Concomitant]
     Active Substance: VONOPRAZAN FUMARATE
     Indication: Gastrooesophageal reflux disease
     Route: 048
  13. TRIAZOLAM EG [Concomitant]
     Indication: Product used for unknown indication
     Route: 048
  14. ESZOPICLONE [Concomitant]
     Active Substance: ESZOPICLONE
     Indication: Product used for unknown indication
     Route: 048
  15. MAGNESIUM OXIDE [Concomitant]
     Active Substance: MAGNESIUM OXIDE
     Indication: Product used for unknown indication
     Route: 048

REACTIONS (9)
  - Pneumocystis jirovecii pneumonia [Recovered/Resolved]
  - Hypoalbuminaemia [Recovering/Resolving]
  - Anaemia [Unknown]
  - Gastrointestinal haemorrhage [Recovered/Resolved]
  - Respiratory disorder [Unknown]
  - Hypophagia [Unknown]
  - Inflammation [Unknown]
  - Rash [Unknown]
  - Haemoglobin decreased [Recovered/Resolved]

NARRATIVE: CASE EVENT DATE: 20210702
